FAERS Safety Report 24028922 (Version 1)
Quarter: 2024Q2

REPORT INFORMATION
  Report Type: Spontaneous
  Country: DK (occurrence: DK)
  Receive Date: 20240628
  Receipt Date: 20240628
  Transmission Date: 20240715
  Serious: Yes (Life-Threatening, Hospitalization, Other)
  Sender: FDA-Public Use
  Company Number: None

PATIENT
  Age: 26 Year
  Sex: Female
  Weight: 95 kg

DRUGS (9)
  1. IBUPROFEN [Suspect]
     Active Substance: IBUPROFEN
     Indication: Back pain
     Dosage: DOSAGE: 400 MG ONCE OR TWICE A DAY.
     Route: 048
     Dates: start: 202309, end: 202404
  2. INSULIN GLARGINE [Concomitant]
     Active Substance: INSULIN GLARGINE
     Indication: Type 1 diabetes mellitus
     Dosage: STRENGTH: 100 E/ML
     Route: 065
     Dates: start: 2022
  3. ELOCON [Concomitant]
     Active Substance: MOMETASONE FUROATE
     Indication: Eczema
     Dosage: 1 APPLICATION A DAY
     Route: 065
     Dates: start: 20230501
  4. NOVORAPID [Concomitant]
     Active Substance: INSULIN ASPART
     Indication: Type 1 diabetes mellitus
     Dosage: STRENGTH: 100 E/ML
     Route: 065
     Dates: start: 2020
  5. ELIDEL [Concomitant]
     Active Substance: PIMECROLIMUS
     Indication: Skin disorder
     Dosage: DOSAGE: 1 APPLICATION MORNING AND EVENING
     Route: 065
     Dates: start: 20230111
  6. NOVORAPID [Concomitant]
     Active Substance: INSULIN ASPART
     Indication: Type 1 diabetes mellitus
     Route: 065
     Dates: start: 2015
  7. CYANOCOBALAMIN [Concomitant]
     Active Substance: CYANOCOBALAMIN
     Indication: Vitamin B12 deficiency
     Route: 065
     Dates: start: 20230119
  8. ACETAMINOPHEN [Concomitant]
     Active Substance: ACETAMINOPHEN
     Indication: Back pain
     Dosage: DOSAGE: 1 GRAM ADMINISTRERED WITH UNKNOWN INTERVALS ?STRENGTH: UNKNOWN
     Route: 065
     Dates: start: 202404
  9. ETHINYL ESTRADIOL\LEVONORGESTREL [Concomitant]
     Active Substance: ETHINYL ESTRADIOL\LEVONORGESTREL
     Indication: Oral contraception
     Route: 065
     Dates: start: 2017

REACTIONS (5)
  - Acute kidney injury [Recovering/Resolving]
  - Tubulointerstitial nephritis [Recovering/Resolving]
  - Pain [Unknown]
  - Abdominal pain lower [Unknown]
  - Nausea [Unknown]

NARRATIVE: CASE EVENT DATE: 20240101
